FAERS Safety Report 12536533 (Version 3)
Quarter: 2016Q3

REPORT INFORMATION
  Report Type: Spontaneous
  Country: US (occurrence: US)
  Receive Date: 20160707
  Receipt Date: 20160808
  Transmission Date: 20161109
  Serious: No
  Sender: FDA-Public Use
  Company Number: US-PFIZER INC-2014121963

PATIENT
  Age: 61 Year
  Sex: Male
  Weight: 101.59 kg

DRUGS (41)
  1. COMPAZINE [Concomitant]
     Active Substance: PROCHLORPERAZINE MALEATE
     Indication: NAUSEA
     Dosage: 5 MG, AS NEEDED (1 TABLET AS NEEDED FOR NAUSEA ORALLY THREE TIMES A DAY)
     Route: 048
  2. ASPIRIN. [Concomitant]
     Active Substance: ASPIRIN
     Dosage: 81 MG, 1X/DAY
     Route: 048
  3. MOMETASONE FUROATE. [Concomitant]
     Active Substance: MOMETASONE FUROATE
     Dosage: UNK, 1X/DAY (50 MCG/ACT INSTILL 1 SPRAY INTO EACH NOSTRIL ONCE DAILY)
     Route: 045
  4. METOPROLOL TARTRATE. [Concomitant]
     Active Substance: METOPROLOL TARTRATE
     Dosage: 25 MG (1 TABLET), 2X/DAY
     Route: 048
  5. PRAVASTATIN SODIUM. [Concomitant]
     Active Substance: PRAVASTATIN SODIUM
     Dosage: 20 MG, 1X/DAY
     Route: 048
  6. ANUCORT-HC [Concomitant]
     Active Substance: HYDROCORTISONE ACETATE
     Dosage: 25 MG, 2X/DAY
     Route: 054
     Dates: start: 20130718
  7. AMLODIPINE BESYLATE. [Concomitant]
     Active Substance: AMLODIPINE BESYLATE
     Indication: BLOOD PRESSURE MEASUREMENT
     Dosage: (5 TABLET) ONE TAB (EVERY DAY)
     Route: 048
  8. FLUTICASONE PROPIONATE. [Concomitant]
     Active Substance: FLUTICASONE PROPIONATE
     Indication: HYPERSENSITIVITY
     Dosage: 1 DF, AS NEEDED ((50 MCG/ACT 1 SPRAY IN EACH NOSTRIL AS NEEDED ALLERGIES NASALLY ONCE A DAY)
     Route: 045
  9. FLONASE [Concomitant]
     Active Substance: FLUTICASONE PROPIONATE
     Dosage: 1 DF, 1X/DAY (50 MCG/ACT )
     Route: 045
  10. LYRICA [Suspect]
     Active Substance: PREGABALIN
     Dosage: 100 MG, 3X/DAY (50 MG 2 CAPSULE ORALLY THREE TIMES A DAY)
     Route: 048
  11. BUPROPION HCL [Concomitant]
     Active Substance: BUPROPION HYDROCHLORIDE
     Indication: MOOD ALTERED
     Dosage: 150 MG (ONE TABLET), IN THE MORNING
     Route: 048
  12. POTASSIUM GLUCONATE [Concomitant]
     Active Substance: POTASSIUM GLUCONATE
     Dosage: 595 MG, AS DIRECTED
     Route: 048
  13. VITAMIN B COMPLEX [Concomitant]
     Active Substance: CYANOCOBALAMIN\DEXPANTHENOL\NIACINAMIDE\PYRIDOXINE HYDROCHLORIDE\RIBOFLAVIN 5^-PHOSPHATE SODIUM\THIAMINE HYDROCHLORIDE\VITAMIN B COMPLEX
     Dosage: UNK, AS DIRECTED
     Route: 048
  14. FENTANYL. [Concomitant]
     Active Substance: FENTANYL
     Dosage: 1 DF, UNK (75 MCG/HR 1 PATCH TO SKIN TRANS DERMAL EVERY 3 DAYS)
     Route: 062
  15. FIBERCON [Concomitant]
     Active Substance: CALCIUM POLYCARBOPHIL
     Indication: FUNCTIONAL GASTROINTESTINAL DISORDER
     Dosage: 1250 MG, DAILY (625 MG 2 TABLETS ORALLY DAILY)
     Route: 048
  16. PRAVACHOL [Concomitant]
     Active Substance: PRAVASTATIN SODIUM
     Dosage: 20 MG, 1X/DAY
  17. VITAMIN C [Concomitant]
     Active Substance: ASCORBIC ACID
     Dosage: 500 MG , 1X/DAY
     Route: 048
  18. LYRICA [Suspect]
     Active Substance: PREGABALIN
     Indication: NEUROPATHY PERIPHERAL
     Dosage: 100 MG, 3X/DAY (1 CAPSULE THREE TIMES A DAY FOR NEUROPATHY 30 DAYS)
     Route: 048
     Dates: start: 20121003
  19. OMEPRAZOLE. [Concomitant]
     Active Substance: OMEPRAZOLE
     Indication: ABDOMINAL DISCOMFORT
     Dosage: 40 MG, 1X/DAY
     Route: 048
  20. GARCINIA CAMBOGIA-CHROMIUM [Concomitant]
     Dosage: 500 MG-200 MCG, AS DIRECTED
     Route: 048
  21. GEMFIBROZIL. [Concomitant]
     Active Substance: GEMFIBROZIL
     Indication: BLOOD TRIGLYCERIDES ABNORMAL
     Dosage: 600  TAKE ONE AND ONE HALF TABLET TWICE DAILY
     Route: 048
  22. DOCUSATE SODIUM. [Concomitant]
     Active Substance: DOCUSATE SODIUM
     Indication: CONSTIPATION
     Dosage: UNK UNK, AS NEEDED (100 MG 1-2 CAPSULE AS NEEDED ORALLY ONCE A DAY FOR CONSTIPATION SO DAY(S)
     Route: 048
  23. TAMSULOSIN HCL [Concomitant]
     Active Substance: TAMSULOSIN
     Dosage: 0.4 MG, 1X/DAY
     Route: 048
  24. PRAVASTATIN SODIUM. [Concomitant]
     Active Substance: PRAVASTATIN SODIUM
     Indication: BLOOD CHOLESTEROL ABNORMAL
     Dosage: 40 MG (ONE TABLET), EVERY DAY IN THE EVENING
     Route: 048
  25. TESTOSTERONE CIPIONATE [Concomitant]
     Active Substance: TESTOSTERONE
     Dosage: (200 MG/ML OIL) 0.5 ML, 2X/WEEK
     Route: 030
     Dates: start: 20131031
  26. ASPIRIN. [Concomitant]
     Active Substance: ASPIRIN
     Dosage: 81 MG, QD
     Route: 048
  27. GEMFIBROZIL. [Concomitant]
     Active Substance: GEMFIBROZIL
     Dosage: 600 MG, 2X/DAY  (600 MG 1 TABLET ORALLY TWICE A DAY)
     Route: 048
  28. BUPROPION HCL [Concomitant]
     Active Substance: BUPROPION HYDROCHLORIDE
     Dosage: 150 MG, DAILY (IN THE MORNING)
     Route: 048
  29. TIZANIDINE HYDROCHLORIDE. [Concomitant]
     Active Substance: TIZANIDINE HYDROCHLORIDE
     Dosage: 4 MG (ONE TABLET), EVERY 8 HOURS AS NEEDED
     Route: 048
  30. METFORMIN HCL [Concomitant]
     Active Substance: METFORMIN HYDROCHLORIDE
     Indication: DIABETES MELLITUS
     Dosage: 1000 MG (1 TABLET ), 2X/DAY WITH MEALS
     Route: 048
  31. METFORMIN HCL [Concomitant]
     Active Substance: METFORMIN HYDROCHLORIDE
     Dosage: 1000 MG, 1X/DAY (1000 MG 1 TABLET WITH EVENING MEAL ORALLY ONCE A DAY)
     Route: 048
  32. LANTUS [Concomitant]
     Active Substance: INSULIN GLARGINE
     Dosage: 100 UNITS/ML SOLUTION 80 UNITS ONCE A DAY ADJUST MAY ADJUST UP TO 100 U PER DAY
     Route: 058
  33. HYDROCODONE W/ACETAMINOPHEN [Concomitant]
     Active Substance: ACETAMINOPHEN\HYDROCODONE BITARTRATE
     Indication: PAIN
     Dosage: 10-325 MG 2 TABLETS AS NEEDED THREE TIMES A DAY
     Route: 048
  34. HYDROCODONE W/ACETAMINOPHEN [Concomitant]
     Active Substance: ACETAMINOPHEN\HYDROCODONE BITARTRATE
     Dosage: 2 DF, AS NEEDED (HYDROCODONE: 10MG;ACETAMINOPHEN:325MG, THREE TIMES A DAY)
     Route: 048
  35. CLOPIDOGREL BISULFATE. [Concomitant]
     Active Substance: CLOPIDOGREL BISULFATE
     Dosage: 75 MG, 1X/DAY
     Route: 048
  36. GLIMEPIRIDE. [Concomitant]
     Active Substance: GLIMEPIRIDE
     Indication: DIABETES MELLITUS
     Dosage: 4 MG (ONE TABLET), 2X/DAY
     Route: 048
  37. OMEGA 3 [Concomitant]
     Active Substance: OMEGA-3 FATTY ACIDS
     Dosage: 1000 MG,  1X/DAY WITH A MEAL
     Route: 048
  38. FLUCONAZOLE. [Concomitant]
     Active Substance: FLUCONAZOLE
     Dosage: 100 MG, 1X/DAY
     Route: 048
  39. LISINOPRIL AND HYDROCHLOROTHIAZIDE [Concomitant]
     Active Substance: HYDROCHLOROTHIAZIDE\LISINOPRIL
     Indication: BLOOD PRESSURE ABNORMAL
     Dosage: 20 HYDROCHLOROTHIAZIDE-12.5 LISINOPRIL TABLET (1 DF), 2X/DAY
     Route: 048
  40. VIAGRA [Concomitant]
     Active Substance: SILDENAFIL CITRATE
     Dosage: 100 MG (1 TABLET), AS NEEDED ONCE A DAY
     Route: 048
     Dates: start: 20121003
  41. VITAMIN D3 [Concomitant]
     Active Substance: CHOLECALCIFEROL
     Dosage: 5000 UNIT (1 CAPSULE), ONCE WEEKLY
     Route: 048

REACTIONS (4)
  - Nerve injury [Unknown]
  - Pain [Unknown]
  - Diabetic neuropathy [Unknown]
  - Withdrawal syndrome [Unknown]
